FAERS Safety Report 24736779 (Version 1)
Quarter: 2024Q4

REPORT INFORMATION
  Report Type: Spontaneous
  Country: IT (occurrence: IT)
  Receive Date: 20241216
  Receipt Date: 20241216
  Transmission Date: 20250115
  Serious: Yes (Hospitalization, Other)
  Sender: HIKMA
  Company Number: IT-HIKMA PHARMACEUTICALS-IT-H14001-24-11404

PATIENT
  Age: 47 Year
  Sex: Male
  Weight: 110 kg

DRUGS (3)
  1. BLEOMYCIN SULFATE [Suspect]
     Active Substance: BLEOMYCIN SULFATE
     Indication: Testicular seminoma (pure)
     Dosage: 30 MILLIGRAM, WEEKLY, TOTAL WEEKLY FOR 3 CYCLES (9 DOSES IN TOTAL)
     Route: 042
     Dates: start: 20240325, end: 20240522
  2. CISPLATIN [Suspect]
     Active Substance: CISPLATIN
     Indication: Testicular seminoma (pure)
     Dosage: 40 MILLIGRAM, 3W, FOR 5 DAYS, EVERY 3 WEEKS
     Route: 042
     Dates: start: 20240325, end: 20240522
  3. ETOPOSIDE [Suspect]
     Active Substance: ETOPOSIDE
     Indication: Testicular seminoma (pure)
     Dosage: 200 MILLIGRAM, 3W, 200 MG TOTAL FOR 5 DAYS EVERY 21 DAYS
     Route: 042
     Dates: start: 20240325, end: 20240522

REACTIONS (3)
  - Chest pain [Recovered/Resolved with Sequelae]
  - Dyspnoea [Recovered/Resolved with Sequelae]
  - Pulmonary fibrosis [Recovered/Resolved with Sequelae]
